FAERS Safety Report 6196602-5 (Version None)
Quarter: 2009Q2

REPORT INFORMATION
  Report Type: 
  Country: None (occurrence: None)
  Receive Date: 20090520
  Receipt Date: 20090508
  Transmission Date: 20091009
  Serious: Yes (Hospitalization)
  Sender: FDA-Public Use
  Company Number: ES-PFIZER INC-2009187495

PATIENT
  Age: 67 Year

DRUGS (6)
  1. SERTRALINE HCL [Suspect]
     Route: 048
     Dates: start: 20090123, end: 20090211
  2. VIBRACINA [Suspect]
     Route: 048
     Dates: start: 20090119, end: 20090129
  3. CIPROFLOXACIN HYDROCHLORIDE [Suspect]
     Dosage: 1000 MG, 1X/DAY
     Route: 048
     Dates: start: 20090109, end: 20090111
  4. ACETAMINOPHEN [Suspect]
     Dosage: 1 G, 1X/DAY
     Route: 048
     Dates: start: 20090101, end: 20090101
  5. SEPTRIN [Suspect]
     Dosage: UNK
     Route: 048
     Dates: start: 20090104, end: 20090109
  6. TAVANIC [Suspect]
     Route: 048
     Dates: start: 20090111, end: 20090118

REACTIONS (2)
  - CHOLESTASIS [None]
  - HEPATITIS [None]
